FAERS Safety Report 8002203-6 (Version None)
Quarter: 2011Q4

REPORT INFORMATION
  Report Type: 
  Country: None (occurrence: None)
  Receive Date: 20111222
  Receipt Date: 20101201
  Transmission Date: 20120403
  Serious: No
  Sender: FDA-Public Use
  Company Number: US-GLAXOSMITHKLINE-A0897312A

PATIENT
  Age: 64 Year
  Sex: Female

DRUGS (2)
  1. NICORETTE [Suspect]
     Indication: EX-TOBACCO USER
     Dates: start: 20030101
  2. PAIN MEDICATIONS [Concomitant]

REACTIONS (2)
  - PRODUCT QUALITY ISSUE [None]
  - INTENTIONAL DRUG MISUSE [None]
